FAERS Safety Report 23777870 (Version 1)
Quarter: 2024Q2

REPORT INFORMATION
  Report Type: Spontaneous
  Country: KW (occurrence: KW)
  Receive Date: 20240424
  Receipt Date: 20240424
  Transmission Date: 20240716
  Serious: Yes (Hospitalization, Other)
  Sender: FDA-Public Use
  Company Number: KW-GLANDPHARMA-KW-2024GLNLIT00041

PATIENT
  Age: 36 Year
  Sex: Female

DRUGS (1)
  1. HEPARIN SODIUM [Suspect]
     Active Substance: HEPARIN SODIUM
     Indication: Anticoagulant therapy
     Route: 065

REACTIONS (4)
  - Vertebrobasilar stroke [Recovered/Resolved]
  - Heparin-induced thrombocytopenia [Recovered/Resolved]
  - Ischaemia [Recovered/Resolved]
  - Deep vein thrombosis [Recovered/Resolved]
